FAERS Safety Report 14929848 (Version 1)
Quarter: 2018Q2

REPORT INFORMATION
  Report Type: Spontaneous
  Country: IL (occurrence: IL)
  Receive Date: 20180523
  Receipt Date: 20180523
  Transmission Date: 20180711
  Serious: Yes (Other)
  Sender: FDA-Public Use
  Company Number: IL-NOVOPROD-599063

PATIENT
  Age: 59 Year
  Sex: Female

DRUGS (1)
  1. NOVORAPID [Suspect]
     Active Substance: INSULIN ASPART
     Indication: PRODUCT USED FOR UNKNOWN INDICATION
     Dosage: UNK
     Route: 058
     Dates: start: 20170619

REACTIONS (5)
  - Diabetes mellitus inadequate control [Recovered/Resolved]
  - Drug effect delayed [Unknown]
  - Vision blurred [Unknown]
  - Drug ineffective [Unknown]
  - Product quality issue [Unknown]
